FAERS Safety Report 21658570 (Version 1)
Quarter: 2022Q4

REPORT INFORMATION
  Report Type: Spontaneous
  Country: US (occurrence: US)
  Receive Date: 20221129
  Receipt Date: 20221129
  Transmission Date: 20230113
  Serious: No
  Sender: FDA-Public Use
  Company Number: US-TEVA-2022-US-2827475

PATIENT
  Sex: Female

DRUGS (1)
  1. LIDOCAINE [Suspect]
     Active Substance: LIDOCAINE
     Indication: Arthralgia
     Dosage: STRENGTH: 5 %
     Route: 065

REACTIONS (3)
  - Device leakage [Unknown]
  - Off label use [Unknown]
  - Drug ineffective [Unknown]
